FAERS Safety Report 6529647-3 (Version None)
Quarter: 2010Q1

REPORT INFORMATION
  Report Type: 
  Country: None (occurrence: None)
  Receive Date: 20100104
  Receipt Date: 20091222
  Transmission Date: 20100710
  Serious: Yes (Hospitalization)
  Sender: FDA-Public Use
  Company Number: 003562

PATIENT
  Age: 69 Year
  Sex: Male
  Weight: 70 kg

DRUGS (11)
  1. KEPPRA [Suspect]
     Dosage: 1500 MG BID
     Dates: start: 20090201
  2. ERGENYL (ERGENYL-CHRONO) (NOT SPECIFIED) [Suspect]
     Dosage: 900 MG ORAL, 300 MG BID ORAL, 750 MG ORAL, 000 MG, ORAL, 1500 MG ORAL
     Route: 048
     Dates: start: 20091125, end: 20091125
  3. ERGENYL (ERGENYL-CHRONO) (NOT SPECIFIED) [Suspect]
     Dosage: 900 MG ORAL, 300 MG BID ORAL, 750 MG ORAL, 000 MG, ORAL, 1500 MG ORAL
     Route: 048
     Dates: start: 20091126
  4. ZONEGRAN [Suspect]
     Dosage: 25 MG BID
  5. MALIASIN (MALIASIN) (NOT SPECIFIED) [Suspect]
     Indication: CONVULSION
     Dosage: 100 MG BID, 100 MG QD
     Dates: end: 20090801
  6. CLEMASTINE FUMARATE [Concomitant]
  7. CALCARB [Concomitant]
  8. DECORTIN [Concomitant]
  9. PANTOPRAZOLE [Concomitant]
  10. ANTIBIOTICS [Concomitant]
  11. HERMONEN (ALL OTHER THERAPEUTIC  PRODUCTS) [Concomitant]

REACTIONS (4)
  - CONVULSION [None]
  - LOSS OF CONSCIOUSNESS [None]
  - MYOCLONUS [None]
  - SOMNOLENCE [None]
